FAERS Safety Report 20854018 (Version 1)
Quarter: 2022Q2

REPORT INFORMATION
  Report Type: Spontaneous
  Country: US (occurrence: None)
  Receive Date: 20220519
  Receipt Date: 20220519
  Transmission Date: 20220720
  Serious: Yes (Hospitalization)
  Sender: FDA-Public Use
  Company Number: None

PATIENT

DRUGS (1)
  1. CAPECITABINE [Suspect]
     Active Substance: CAPECITABINE

REACTIONS (11)
  - Lip blister [None]
  - Rash [None]
  - Rash [None]
  - Rash [None]
  - Abdominal pain [None]
  - Diarrhoea [None]
  - Stomatitis [None]
  - Dihydropyrimidine dehydrogenase deficiency [None]
  - Product administration error [None]
  - Circumstance or information capable of leading to medication error [None]
  - Product use issue [None]
